FAERS Safety Report 18902475 (Version 7)
Quarter: 2022Q1

REPORT INFORMATION
  Report Type: Spontaneous
  Country: BR (occurrence: BR)
  Receive Date: 20210216
  Receipt Date: 20220317
  Transmission Date: 20220423
  Serious: Yes (Hospitalization, Other)
  Sender: FDA-Public Use
  Company Number: BR-BIOMARINAP-BR-2021-135024

PATIENT
  Age: 4 Year
  Sex: Female
  Weight: 15 kg

DRUGS (2)
  1. LARONIDASE [Suspect]
     Active Substance: LARONIDASE
     Indication: Mucopolysaccharidosis I
     Dosage: 3 DF, QW (VIALS)
     Route: 041
     Dates: start: 20190624
  2. LARONIDASE [Suspect]
     Active Substance: LARONIDASE
     Dosage: UNK UNK, Q15D
     Route: 041

REACTIONS (14)
  - Seizure [Unknown]
  - Pneumonia [Recovering/Resolving]
  - Influenza [Recovering/Resolving]
  - Pyrexia [Recovering/Resolving]
  - Muscular weakness [Unknown]
  - Mobility decreased [Unknown]
  - Gait inability [Recovering/Resolving]
  - Weight decreased [Unknown]
  - Influenza [Unknown]
  - Asthma [Unknown]
  - Wheezing [Unknown]
  - Chest X-ray abnormal [Unknown]
  - Product dose omission issue [Unknown]
  - Unevaluable event [Recovering/Resolving]

NARRATIVE: CASE EVENT DATE: 20210101
